FAERS Safety Report 16442912 (Version 3)
Quarter: 2019Q3

REPORT INFORMATION
  Report Type: Spontaneous
  Country: US (occurrence: US)
  Receive Date: 20190617
  Receipt Date: 20190830
  Transmission Date: 20191004
  Serious: Yes (Other)
  Sender: FDA-Public Use
  Company Number: US-ALLERGAN-1923334US

PATIENT
  Sex: Female

DRUGS (5)
  1. RESTASIS [Suspect]
     Active Substance: CYCLOSPORINE
     Indication: DRY EYE
     Dosage: 2-3X/DAY AS NEEDED, NO MORE THAN 3 TIMES
     Route: 047
     Dates: start: 201807
  2. ANTIHYPERTENSIVES [Concomitant]
     Active Substance: UNSPECIFIED INGREDIENT
     Indication: HYPERTENSION
     Dosage: UNK
  3. REFRESH PLUS [Suspect]
     Active Substance: CARBOXYMETHYLCELLULOSE SODIUM
     Indication: DRY EYE
     Dosage: UNK, PRN
     Route: 047
  4. UNSPECIFIED CHOLESTEROL MEDICATION [Concomitant]
     Active Substance: UNSPECIFIED INGREDIENT
     Dosage: UNK
  5. ANTITHROMBOTIC AGENTS [Concomitant]
     Active Substance: UNSPECIFIED INGREDIENT
     Indication: CARDIAC OPERATION
     Dosage: UNK

REACTIONS (7)
  - Glaucoma [Not Recovered/Not Resolved]
  - Application site exfoliation [Unknown]
  - Eye pain [Unknown]
  - Inappropriate schedule of product administration [Unknown]
  - Erythema of eyelid [Unknown]
  - Ocular hyperaemia [Unknown]
  - Skin exfoliation [Unknown]

NARRATIVE: CASE EVENT DATE: 201807
